FAERS Safety Report 12560281 (Version 1)
Quarter: 2016Q3

REPORT INFORMATION
  Report Type: Spontaneous
  Country: US (occurrence: None)
  Receive Date: 20160714
  Receipt Date: 20160714
  Transmission Date: 20161109
  Serious: Yes (Hospitalization)
  Sender: FDA-Public Use
  Company Number: None

PATIENT
  Age: 47 Year
  Sex: Female
  Weight: 120.4 kg

DRUGS (1)
  1. MEMANTINE HYDROCHLORIDE. [Suspect]
     Active Substance: MEMANTINE HYDROCHLORIDE
     Dates: end: 20160515

REACTIONS (8)
  - Metastases to central nervous system [None]
  - Nausea [None]
  - Vomiting [None]
  - Syncope [None]
  - Photophobia [None]
  - Arthralgia [None]
  - Gait disturbance [None]
  - Headache [None]

NARRATIVE: CASE EVENT DATE: 20160623
